FAERS Safety Report 5041715-4 (Version None)
Quarter: 2006Q2

REPORT INFORMATION
  Report Type: 
  Country: None (occurrence: None)
  Receive Date: 20060630
  Receipt Date: 20060622
  Transmission Date: 20061013
  Serious: Yes (Other)
  Sender: FDA-Public Use
  Company Number: 2006079773

PATIENT
  Age: 15 Year
  Sex: Female

DRUGS (3)
  1. DILANTIN [Suspect]
  2. PHENOBARBITAL TAB [Suspect]
  3. KEPPRA [Suspect]

REACTIONS (5)
  - COMA [None]
  - CONVULSION [None]
  - ENCEPHALITIS [None]
  - EPILEPSY [None]
  - RASH [None]
